FAERS Safety Report 25160606 (Version 2)
Quarter: 2025Q2

REPORT INFORMATION
  Report Type: Spontaneous
  Country: JP (occurrence: JP)
  Receive Date: 20250404
  Receipt Date: 20250408
  Transmission Date: 20250717
  Serious: Yes (Death, Other)
  Sender: Vantive US Healthcare
  Company Number: JP-VANTIVE-2025VAN001513

PATIENT
  Age: 78 Year
  Sex: Male

DRUGS (2)
  1. EXTRANEAL [Suspect]
     Active Substance: CALCIUM CHLORIDE\ICODEXTRIN\MAGNESIUM CHLORIDE\SODIUM CHLORIDE\SODIUM LACTATE
     Route: 033
     Dates: start: 20250305
  2. Perisate [Concomitant]
     Route: 033
     Dates: start: 20250311

REACTIONS (4)
  - Cardiac failure [Fatal]
  - Apnoea [Fatal]
  - Bradycardia [Fatal]
  - Inflammation [Unknown]

NARRATIVE: CASE EVENT DATE: 20250321
